FAERS Safety Report 7855153-X (Version None)
Quarter: 2011Q4

REPORT INFORMATION
  Report Type: 
  Country: None (occurrence: None)
  Receive Date: 20111026
  Receipt Date: 20111011
  Transmission Date: 20120403
  Serious: Yes (Hospitalization)
  Sender: FDA-Public Use
  Company Number: US-WATSON-2011-17001

PATIENT
  Age: 53 Year
  Sex: Female

DRUGS (1)
  1. PREDNISONE [Suspect]
     Indication: AUTOIMMUNE DISORDER
     Dosage: 10 MG, DAILY FOR 9 YEARS

REACTIONS (13)
  - BACK PAIN [None]
  - FALL [None]
  - PARAPLEGIA [None]
  - MYELITIS [None]
  - FUSARIUM INFECTION [None]
  - BONE ABSCESS [None]
  - EXTRADURAL ABSCESS [None]
  - OSTEOMYELITIS [None]
  - ARACHNOIDITIS [None]
  - CELLULITIS [None]
  - CONUS MEDULLARIS SYNDROME [None]
  - GAIT DISTURBANCE [None]
  - HYPOKINESIA [None]
